FAERS Safety Report 25944283 (Version 1)
Quarter: 2025Q4

REPORT INFORMATION
  Report Type: Spontaneous
  Country: US (occurrence: None)
  Receive Date: 20251021
  Receipt Date: 20251021
  Transmission Date: 20260117
  Serious: No
  Sender: FDA-CTU
  Company Number: None

PATIENT
  Age: 48 Year
  Sex: Female
  Weight: 52.65 kg

DRUGS (5)
  1. MUCINEX SINUS-MAX SEVERE NASAL CONGESTION RELIEF CLEAR AND COOL NASAL [Suspect]
     Active Substance: OXYMETAZOLINE HYDROCHLORIDE
     Indication: Nasal congestion
     Dosage: OTHER QUANTITY : 2 SPRAY(S);?FREQUENCY : EVERY 12 HOURS;?
  2. Sertaline 25 mg daily [Concomitant]
  3. Welbutrin 300 mg daily [Concomitant]
  4. Probiotic daily [Concomitant]
  5. 5 mg melatonin [Concomitant]

REACTIONS (2)
  - Insomnia [None]
  - Headache [None]

NARRATIVE: CASE EVENT DATE: 20251020
